FAERS Safety Report 5531527-7 (Version None)
Quarter: 2007Q4

REPORT INFORMATION
  Report Type: 
  Country: None (occurrence: None)
  Receive Date: 20071128
  Receipt Date: 20071128
  Transmission Date: 20080405
  Serious: Yes (Other)
  Sender: FDA-Public Use
  Company Number: None

PATIENT
  Age: 43 Year
  Sex: Female
  Weight: 56.6996 kg

DRUGS (1)
  1. CHANTIX [Suspect]
     Indication: SMOKING CESSATION THERAPY
     Dosage: .5 2X/DAY FOR 7 DAYS PO; 1MG 2X/DAY FOR 21 DAYS PO
     Route: 048
     Dates: start: 20070909, end: 20071006

REACTIONS (5)
  - AGGRESSION [None]
  - ANGER [None]
  - MOOD SWINGS [None]
  - NIGHTMARE [None]
  - POOR QUALITY SLEEP [None]
